FAERS Safety Report 8522748-X (Version None)
Quarter: 2012Q3

REPORT INFORMATION
  Report Type: 
  Country: None (occurrence: None)
  Receive Date: 20120719
  Receipt Date: 20120710
  Transmission Date: 20120928
  Serious: Yes (Hospitalization, Other)
  Sender: FDA-Public Use
  Company Number: US-009507513-1203USA00792

PATIENT

DRUGS (6)
  1. FOSAMAX [Suspect]
     Indication: OSTEOPOROSIS
     Dosage: 10 MG, QD
     Route: 048
     Dates: start: 19990403, end: 20090520
  2. EFFEXOR XR [Concomitant]
     Indication: ANXIETY
     Dosage: 37.5 MG, QD
     Route: 048
  3. CALCIUM (UNSPECIFIED) [Concomitant]
     Dosage: TO PRESENT
     Dates: start: 19990101
  4. MK-9278 [Concomitant]
     Dosage: TO PRESENT
     Route: 048
     Dates: start: 19990101
  5. FOSAMAX [Suspect]
     Indication: OSTEOPENIA
     Dosage: 70 MG, UNK
     Route: 048
  6. ISOTONIX OPC-3 [Concomitant]
     Dosage: TO PRESENT
     Dates: start: 19990101

REACTIONS (43)
  - DEVICE FAILURE [None]
  - COUGH [None]
  - IRRITABLE BOWEL SYNDROME [None]
  - LEUKOPENIA [None]
  - HYPOTENSION [None]
  - PERIORBITAL HAEMATOMA [None]
  - LOW TURNOVER OSTEOPATHY [None]
  - CERVICAL VERTEBRAL FRACTURE [None]
  - MALOCCLUSION [None]
  - INTERVERTEBRAL DISC PROTRUSION [None]
  - THORACIC VERTEBRAL FRACTURE [None]
  - RHINITIS SEASONAL [None]
  - RECTAL POLYP [None]
  - HERPES ZOSTER [None]
  - VOMITING PROJECTILE [None]
  - JOINT DISLOCATION [None]
  - HYPERLIPIDAEMIA [None]
  - FRACTURE NONUNION [None]
  - HYPERTENSION [None]
  - SQUAMOUS CELL CARCINOMA [None]
  - DEPRESSION [None]
  - SPINAL COLUMN STENOSIS [None]
  - FOOT FRACTURE [None]
  - POST HERPETIC NEURALGIA [None]
  - DRUG INEFFECTIVE [None]
  - RASH [None]
  - FEMUR FRACTURE [None]
  - RIB FRACTURE [None]
  - CONSTIPATION [None]
  - ANAEMIA POSTOPERATIVE [None]
  - PERNICIOUS ANAEMIA [None]
  - MENISCUS LESION [None]
  - POST PROCEDURAL CONSTIPATION [None]
  - CATARACT [None]
  - SPINAL OSTEOARTHRITIS [None]
  - DIVERTICULUM [None]
  - LYMPHADENITIS [None]
  - OSTEOARTHRITIS [None]
  - PELVIC FRACTURE [None]
  - ANXIETY [None]
  - CONTUSION [None]
  - INSOMNIA [None]
  - DIVERTICULITIS [None]
